FAERS Safety Report 5717257-7 (Version None)
Quarter: 2008Q2

REPORT INFORMATION
  Report Type: 
  Country: None (occurrence: None)
  Receive Date: 20080424
  Receipt Date: 20080411
  Transmission Date: 20081010
  Serious: Yes (Death, Other)
  Sender: FDA-Public Use
  Company Number: PHHY2008JP04231

PATIENT
  Age: 41 Year
  Sex: Female

DRUGS (2)
  1. VOLTAREN [Suspect]
     Indication: HEADACHE
     Route: 048
  2. PREDNISOLONE [Concomitant]
     Dosage: 10 MG, UNK

REACTIONS (6)
  - ARTERIAL HAEMORRHAGE [None]
  - BONE MARROW FAILURE [None]
  - CARDIO-RESPIRATORY ARREST [None]
  - NEPHROTIC SYNDROME [None]
  - SELENIUM DEFICIENCY [None]
  - TRACHEAL FISTULA [None]
